FAERS Safety Report 7505783-X (Version None)
Quarter: 2011Q2

REPORT INFORMATION
  Report Type: 
  Country: None (occurrence: None)
  Receive Date: 20110526
  Receipt Date: 20110517
  Transmission Date: 20111010
  Serious: Yes (Other)
  Sender: FDA-Public Use
  Company Number: US-ASTRAZENECA-2011SE29935

PATIENT
  Age: 61 Year
  Sex: Male
  Weight: 147.4 kg

DRUGS (10)
  1. ZOLOFT [Concomitant]
     Indication: NERVOUSNESS
  2. NORVASC [Concomitant]
     Indication: HYPERTENSION
  3. GLEBORIDE [Concomitant]
     Indication: DIABETES MELLITUS
  4. LOWPRESSOR [Concomitant]
     Indication: HYPERTENSION
  5. OXYCONTIN [Concomitant]
     Indication: PAIN
  6. DIOVAN [Concomitant]
     Indication: HYPERTENSION
  7. ALLOPURINOL [Concomitant]
     Indication: GOUT
  8. MOBIC [Concomitant]
     Indication: ARTHROPATHY
  9. OXYCODONE HCL [Concomitant]
     Indication: PAIN
  10. NEXIUM [Suspect]
     Route: 048

REACTIONS (1)
  - SPINAL FRACTURE [None]
